FAERS Safety Report 20627256 (Version 1)
Quarter: 2022Q1

REPORT INFORMATION
  Report Type: Report from Study
  Country: CA (occurrence: CA)
  Receive Date: 20220323
  Receipt Date: 20220323
  Transmission Date: 20220424
  Serious: Yes (Death, Other)
  Sender: FDA-Public Use
  Company Number: CA-GLAXOSMITHKLINE-CA2022051236

PATIENT
  Sex: Male

DRUGS (4)
  1. MEPOLIZUMAB [Suspect]
     Active Substance: MEPOLIZUMAB
     Indication: Asthma
     Dosage: 100 MG, Z(EVERY 4 WEEKS)
     Route: 058
     Dates: start: 20180615
  2. BREO ELLIPTA [Concomitant]
     Active Substance: FLUTICASONE FUROATE\VILANTEROL TRIFENATATE
     Indication: Product used for unknown indication
     Dosage: UNK,SINCE 2 YEARS, DIE
     Dates: start: 2020
  3. INCRUSE ELLIPTA INHALER (UMECLIDINIUM) [Concomitant]
     Indication: Product used for unknown indication
     Dosage: UNK,SINCE 2 YEARS DIE
     Dates: start: 2020
  4. VENTOLIN [Concomitant]
     Active Substance: ALBUTEROL SULFATE
     Indication: Product used for unknown indication
     Dosage: UNK,PRN (SINCE 7 TO 10 YEARS

REACTIONS (1)
  - Death [Fatal]
